FAERS Safety Report 6981686-4 (Version None)
Quarter: 2010Q3

REPORT INFORMATION
  Report Type: 
  Country: None (occurrence: None)
  Receive Date: 20100914
  Receipt Date: 20090901
  Transmission Date: 20110219
  Serious: Yes (Other)
  Sender: FDA-Public Use
  Company Number: US-PFIZER INC-2009263343

PATIENT
  Sex: Female

DRUGS (6)
  1. LYRICA [Suspect]
     Indication: PAIN IN EXTREMITY
     Dosage: 150 MG, UNK
  2. LYRICA [Suspect]
     Dosage: 300 MG, UNK
  3. DEPAKOTE [Concomitant]
     Indication: BIPOLAR I DISORDER
     Dosage: UNK
  4. DEPAKOTE [Concomitant]
     Indication: ANXIETY
  5. KLONOPIN [Concomitant]
     Indication: BIPOLAR I DISORDER
     Dosage: UNK
  6. KLONOPIN [Concomitant]
     Indication: ANXIETY

REACTIONS (3)
  - APPETITE DISORDER [None]
  - DRUG INEFFECTIVE [None]
  - WEIGHT INCREASED [None]
